FAERS Safety Report 13760693 (Version 1)
Quarter: 2017Q3

REPORT INFORMATION
  Report Type: Report from Study
  Country: JP (occurrence: JP)
  Receive Date: 20170717
  Receipt Date: 20170717
  Transmission Date: 20171127
  Serious: Yes (Hospitalization)
  Sender: FDA-Public Use
  Company Number: JP-ASTRAZENECA-2017SE72952

PATIENT
  Age: 21594 Day
  Sex: Male
  Weight: 73 kg

DRUGS (8)
  1. FORXIGA [Suspect]
     Active Substance: DAPAGLIFLOZIN
     Indication: TYPE 2 DIABETES MELLITUS
     Route: 048
     Dates: start: 20160517
  2. CYMBALTA [Concomitant]
     Active Substance: DULOXETINE HYDROCHLORIDE
     Indication: BIPOLAR I DISORDER
     Dosage: 20 MG, NUMBER OF SEPARATE DOSAGES UNKNOWN
     Route: 048
     Dates: start: 20150730
  3. FLUNITRAZEPAM [Concomitant]
     Active Substance: FLUNITRAZEPAM
     Indication: INSOMNIA
     Dosage: 1.5 MG,NUMBER OF SEPARATE DOSAGES UNKNOWN
     Route: 048
     Dates: start: 20150908
  4. TSUMURA DAIKENCHUTO EXTRACT GRANULES FOR ETHICAL USE [Concomitant]
     Active Substance: HERBALS
     Indication: CONSTIPATION
     Dosage: 7.5 MG, NUMBER OF SEPARATE DOSAGES UNKNOWN
     Route: 048
     Dates: start: 20150825
  5. CRESTOR OD TABLETS 5MG [Concomitant]
     Indication: HYPERCHOLESTEROLAEMIA
     Dosage: 5 MG, NUMBER OF SEPARATE DOSAGES UNKNOWN
     Route: 048
     Dates: start: 20160302
  6. URSODEOXYCHOLIC ACID [Concomitant]
     Active Substance: URSODIOL
     Indication: STEATOHEPATITIS
     Dosage: 150 MG, NUMBER OF SEPARATE DOSAGES UNKNOWN
     Route: 048
     Dates: start: 20160302
  7. TSUMURA SHAKUYAKUKANZOTO EXTRACT GRANULES FOR ETHICAL USE [Concomitant]
     Indication: MYALGIA
     Dosage: 7.5 MG, NUMBER OF SEPARATE DOSAGES UNKNOWN
     Route: 048
     Dates: start: 20170327
  8. SENNOSIDE [Concomitant]
     Active Substance: SENNOSIDES
     Indication: CONSTIPATION
     Route: 048
     Dates: start: 20150730

REACTIONS (1)
  - Bipolar I disorder [Recovering/Resolving]

NARRATIVE: CASE EVENT DATE: 20170624
